FAERS Safety Report 14321916 (Version 2)
Quarter: 2018Q2

REPORT INFORMATION
  Report Type: Report from Study
  Country: IT (occurrence: IT)
  Receive Date: 20171225
  Receipt Date: 20180427
  Transmission Date: 20180711
  Serious: Yes (Hospitalization)
  Sender: FDA-Public Use
  Company Number: IT-ROCHE-1903029

PATIENT
  Age: 68 Year
  Sex: Male
  Weight: 56 kg

DRUGS (2)
  1. BEVACIZUMAB. [Suspect]
     Active Substance: BEVACIZUMAB
     Indication: NEOPLASM MALIGNANT
     Dosage: MOST RECENT DOSE PRIOR TO SAE: 24/JAN/2017
     Route: 042
     Dates: start: 20120911
  2. BEVACIZUMAB. [Suspect]
     Active Substance: BEVACIZUMAB
     Route: 042
     Dates: start: 20071019, end: 20120710

REACTIONS (1)
  - Circulatory collapse [Recovered/Resolved]

NARRATIVE: CASE EVENT DATE: 20170302
